FAERS Safety Report 7804147-9 (Version None)
Quarter: 2011Q4

REPORT INFORMATION
  Report Type: 
  Country: None (occurrence: None)
  Receive Date: 20111010
  Receipt Date: 20110928
  Transmission Date: 20120403
  Serious: No
  Sender: FDA-Public Use
  Company Number: US-B.I. PHARMACEUTICALS,INC./RIDGEFIELD-2011-BP-19813BP

PATIENT

DRUGS (2)
  1. PRADAXA [Suspect]
     Dosage: 300 MG
     Route: 048
     Dates: end: 20110727
  2. NIFEDIPINE [Concomitant]
     Dates: start: 20010101

REACTIONS (4)
  - HAEMATOCHEZIA [None]
  - DIZZINESS POSTURAL [None]
  - NAUSEA [None]
  - MELAENA [None]
